FAERS Safety Report 6823199-6 (Version None)
Quarter: 2010Q3

REPORT INFORMATION
  Report Type: 
  Country: None (occurrence: None)
  Receive Date: 20100708
  Receipt Date: 20100702
  Transmission Date: 20110219
  Serious: Yes (Death)
  Sender: FDA-Public Use
  Company Number: US-GILEAD-2010-0030229

PATIENT
  Sex: Male
  Weight: 67.192 kg

DRUGS (14)
  1. LETAIRIS [Suspect]
     Indication: PULMONARY ARTERIAL HYPERTENSION
     Route: 048
     Dates: start: 20080215
  2. VIAGRA [Concomitant]
  3. OXYGEN [Concomitant]
  4. BUMEX [Concomitant]
  5. PRINIVIL [Concomitant]
  6. LANOXIN [Concomitant]
  7. HYDROCORTISONE [Concomitant]
  8. LEVOXYL [Concomitant]
  9. POTASSIUM CHLORIDE [Concomitant]
  10. PRILOSEC [Concomitant]
  11. PROTONIX [Concomitant]
  12. SYNTHROID [Concomitant]
  13. TYLENOL [Concomitant]
  14. ZOLOFT [Concomitant]

REACTIONS (1)
  - DEATH [None]
